FAERS Safety Report 5192305-4 (Version None)
Quarter: 2006Q4

REPORT INFORMATION
  Report Type: 
  Country: None (occurrence: None)
  Receive Date: 20061227
  Receipt Date: 20061213
  Transmission Date: 20070319
  Serious: Yes (Death)
  Sender: FDA-Public Use
  Company Number: US-SHR-US-2006-039197

PATIENT
  Age: 46 Year
  Sex: Female

DRUGS (2)
  1. BETASERON [Suspect]
     Dates: start: 20041109, end: 20050321
  2. BETASERON [Suspect]
     Dates: start: 20050520, end: 20061017

REACTIONS (2)
  - ALCOHOLISM [None]
  - OVERDOSE [None]
